FAERS Safety Report 8156857-4 (Version None)
Quarter: 2012Q1

REPORT INFORMATION
  Report Type: 
  Country: None (occurrence: None)
  Receive Date: 20120222
  Receipt Date: 20120217
  Transmission Date: 20120608
  Serious: Yes (Other)
  Sender: FDA-Public Use
  Company Number: US-GLAXOSMITHKLINE-A0966403A

PATIENT
  Age: 78 Year
  Sex: Female

DRUGS (11)
  1. DIETHYLPROPION [Concomitant]
  2. VITAMIN D [Concomitant]
  3. POTASSIUM CHLORIDE [Concomitant]
  4. DIOVAN [Concomitant]
  5. PREDNISONE [Concomitant]
  6. TRAMADOL HCL [Concomitant]
  7. NEXIUM [Concomitant]
  8. FLOVENT [Concomitant]
  9. ASPIRIN [Concomitant]
  10. ADVAIR DISKUS 100/50 [Suspect]
     Indication: CHRONIC OBSTRUCTIVE PULMONARY DISEASE
     Dosage: 1PUFF TWICE PER DAY
     Route: 055
  11. CALCIUM [Concomitant]

REACTIONS (1)
  - GINGIVAL ATROPHY [None]
